FAERS Safety Report 12832472 (Version 2)
Quarter: 2017Q4

REPORT INFORMATION
  Report Type: Spontaneous
  Country: US (occurrence: US)
  Receive Date: 20161010
  Receipt Date: 20171026
  Transmission Date: 20180320
  Serious: No
  Sender: FDA-Public Use
  Company Number: US-JAZZ-2016-US-013229

PATIENT
  Sex: Female

DRUGS (12)
  1. ESTRACE [Concomitant]
     Active Substance: ESTRADIOL
  2. MACRODANTIN [Concomitant]
     Active Substance: NITROFURANTOIN
  3. XYREM [Suspect]
     Active Substance: SODIUM OXYBATE
     Indication: FIBROMYALGIA
     Dosage: 2.25G, BID
     Route: 048
     Dates: start: 201004
  4. CLARITIN [Concomitant]
     Active Substance: LORATADINE
  5. HYDROCODONE/ACETAMINOPHEN [Concomitant]
     Active Substance: ACETAMINOPHEN\HYDROCODONE
  6. CYCLOBENZAPRINE. [Concomitant]
     Active Substance: CYCLOBENZAPRINE
  7. CLARINEX [Concomitant]
     Active Substance: DESLORATADINE
  8. MOBIC [Concomitant]
     Active Substance: MELOXICAM
  9. TRAMADOL HCL [Concomitant]
     Active Substance: TRAMADOL HYDROCHLORIDE
  10. DARVOCET [Concomitant]
     Active Substance: ACETAMINOPHEN\PROPOXYPHENE HYDROCHLORIDE
  11. TUMS EX [Concomitant]
     Active Substance: CALCIUM CARBONATE
  12. LISINOPRIL. [Suspect]
     Active Substance: LISINOPRIL
     Indication: PRODUCT USED FOR UNKNOWN INDICATION

REACTIONS (5)
  - Mouth swelling [Recovered/Resolved]
  - Artificial crown procedure [Unknown]
  - Hypersensitivity [Unknown]
  - Hypertension [Recovered/Resolved]
  - Spinal osteoarthritis [Recovering/Resolving]

NARRATIVE: CASE EVENT DATE: 2016
